FAERS Safety Report 15117492 (Version 2)
Quarter: 2018Q3

REPORT INFORMATION
  Report Type: Spontaneous
  Country: IT (occurrence: IT)
  Receive Date: 20180706
  Receipt Date: 20180729
  Transmission Date: 20181010
  Serious: Yes (Other)
  Sender: FDA-Public Use
  Company Number: PHHY2018IT037012

PATIENT
  Age: 50 Year
  Sex: Male
  Weight: 87 kg

DRUGS (1)
  1. PRAMIPEXOLE. [Suspect]
     Active Substance: PRAMIPEXOLE
     Indication: RESTLESS LEGS SYNDROME
     Dosage: 0.18 UG, QD
     Route: 048
     Dates: start: 20110101, end: 20171109

REACTIONS (1)
  - Gambling disorder [Recovered/Resolved]

NARRATIVE: CASE EVENT DATE: 20110301
